FAERS Safety Report 13443045 (Version 1)
Quarter: 2017Q2

REPORT INFORMATION
  Report Type: Spontaneous
  Country: DE (occurrence: DE)
  Receive Date: 20170414
  Receipt Date: 20170414
  Transmission Date: 20170830
  Serious: Yes (Other)
  Sender: FDA-Public Use
  Company Number: DE-JNJFOC-20170413639

PATIENT
  Sex: Male

DRUGS (3)
  1. XARELTO [Suspect]
     Active Substance: RIVAROXABAN
     Indication: EMBOLISM VENOUS
     Route: 048
  2. BIOTIN [Concomitant]
     Active Substance: BIOTIN
     Route: 065
  3. AESCULUS HIPPOCASTANUM EXTRACT [Concomitant]
     Route: 065

REACTIONS (4)
  - Breast mass [Unknown]
  - Nipple disorder [Unknown]
  - Nipple enlargement [Unknown]
  - Hyperaesthesia [Unknown]
